FAERS Safety Report 14611380 (Version 1)
Quarter: 2018Q1

REPORT INFORMATION
  Report Type: Report from Study
  Country: US (occurrence: US)
  Receive Date: 20180308
  Receipt Date: 20180308
  Transmission Date: 20180509
  Serious: Yes (Hospitalization)
  Sender: FDA-Public Use
  Company Number: US-ROCHE-2084116

PATIENT
  Age: 75 Year
  Sex: Male

DRUGS (1)
  1. XOLAIR [Suspect]
     Active Substance: OMALIZUMAB
     Indication: ATELECTASIS
     Dosage: UNKNOWN
     Route: 065

REACTIONS (6)
  - Intentional product use issue [Unknown]
  - Pneumonia [Recovering/Resolving]
  - Hypoxia [Recovering/Resolving]
  - Acute respiratory failure [Recovering/Resolving]
  - Sepsis [Recovering/Resolving]
  - Off label use [Unknown]

NARRATIVE: CASE EVENT DATE: 201711
